FAERS Safety Report 5021277-8 (Version None)
Quarter: 2006Q2

REPORT INFORMATION
  Report Type: 
  Country: None (occurrence: None)
  Receive Date: 20060608
  Receipt Date: 20060526
  Transmission Date: 20061013
  Serious: Yes (Hospitalization)
  Sender: FDA-Public Use
  Company Number: US-GLAXOSMITHKLINE-A0607080A

PATIENT
  Sex: Female

DRUGS (2)
  1. LAMICTAL [Suspect]
     Indication: BIPOLAR DISORDER
     Route: 048
  2. NO CONCURRENT MEDICATION [Concomitant]

REACTIONS (6)
  - ANAEMIA [None]
  - BLOOD DISORDER [None]
  - BONE MARROW FAILURE [None]
  - HAEMORRHAGE INTRACRANIAL [None]
  - HEADACHE [None]
  - THROMBOCYTOPENIA [None]
